FAERS Safety Report 8985337 (Version 1)
Quarter: 2012Q4

REPORT INFORMATION
  Report Type: 
  Country: US (occurrence: US)
  Receive Date: 20121226
  Receipt Date: 20121226
  Transmission Date: 20130627
  Serious: No
  Sender: FDA-Public Use
  Company Number: US-ABBOTT-12P-163-1006645-00

PATIENT
  Sex: Male
  Weight: 98.97 kg

DRUGS (3)
  1. LUPRON DEPOT [Suspect]
     Indication: PROSTATE CANCER
     Dates: start: 201112, end: 201112
  2. UNKNOWN CHOLESTEROL [Concomitant]
     Indication: BLOOD CHOLESTEROL INCREASED
  3. UNKNOWN HIGH BLOOD PRESSURE [Concomitant]
     Indication: HYPERTENSION

REACTIONS (2)
  - Hot flush [Recovering/Resolving]
  - Fatigue [Not Recovered/Not Resolved]
